FAERS Safety Report 5893240-6 (Version None)
Quarter: 2008Q3

REPORT INFORMATION
  Report Type: 
  Country: None (occurrence: None)
  Receive Date: 20080919
  Receipt Date: 20080812
  Transmission Date: 20090109
  Serious: Yes (Disabling)
  Sender: FDA-Public Use
  Company Number: 8036078

PATIENT
  Age: 13 Year
  Sex: Male

DRUGS (2)
  1. LEVETIRACETAM [Suspect]
     Indication: SLEEP DISORDER
     Dosage: 2000 MG
     Dates: start: 20080601, end: 20080101
  2. LEVETIRACETAM [Suspect]
     Indication: SLEEP DISORDER
     Dosage: 2000 MG
     Dates: start: 20080101

REACTIONS (1)
  - BLINDNESS UNILATERAL [None]
